FAERS Safety Report 24033368 (Version 4)
Quarter: 2024Q4

REPORT INFORMATION
  Report Type: Report from Study
  Country: JP (occurrence: JP)
  Receive Date: 20240701
  Receipt Date: 20241206
  Transmission Date: 20250115
  Serious: Yes (Hospitalization)
  Sender: AMGEN
  Company Number: JP-AMGEN-HZN-2024-005830

PATIENT
  Age: 49 Year
  Sex: Female
  Weight: 50.1 kg

DRUGS (14)
  1. INEBILIZUMAB [Suspect]
     Active Substance: INEBILIZUMAB
     Indication: Neuromyelitis optica spectrum disorder
     Dosage: 300 MILLIGRAM, QD
     Route: 042
     Dates: start: 20231107
  2. INEBILIZUMAB [Suspect]
     Active Substance: INEBILIZUMAB
     Dosage: 300 MILLIGRAM, QD
     Route: 042
     Dates: start: 20231121
  3. INEBILIZUMAB [Suspect]
     Active Substance: INEBILIZUMAB
     Dosage: 300 MILLIGRAM, QD
     Route: 042
     Dates: start: 20240523
  4. PREDNISOLONE [Concomitant]
     Active Substance: PREDNISOLONE
     Indication: Neuromyelitis optica spectrum disorder
     Dosage: UNK
     Route: 065
     Dates: end: 20231222
  5. AZATHIOPRINE [Concomitant]
     Active Substance: AZATHIOPRINE
     Indication: Neuromyelitis optica spectrum disorder
     Dosage: UNK
     Route: 065
     Dates: end: 20231114
  6. SULFAMETHOXAZOLE\TRIMETHOPRIM [Concomitant]
     Active Substance: SULFAMETHOXAZOLE\TRIMETHOPRIM
     Indication: Prophylaxis
     Dosage: UNK
     Route: 065
  7. BROTIZOLAM [Concomitant]
     Active Substance: BROTIZOLAM
     Indication: Insomnia
     Dosage: UNK
     Route: 065
  8. LYRICA [Concomitant]
     Active Substance: PREGABALIN
     Indication: Neuromyelitis optica spectrum disorder
     Dosage: UNK
     Route: 065
  9. MAGNESIUM OXIDE [Concomitant]
     Active Substance: MAGNESIUM OXIDE
     Indication: Constipation
     Dosage: UNK
     Route: 065
  10. MEXILETINE HYDROCHLORIDE [Concomitant]
     Active Substance: MEXILETINE HYDROCHLORIDE
     Indication: Neuromyelitis optica spectrum disorder
     Dosage: UNK
     Route: 065
  11. SODIUM PICOSULFATE [Concomitant]
     Active Substance: SODIUM PICOSULFATE
     Indication: Constipation
     Dosage: UNK
     Route: 048
  12. CYMBALTA [Concomitant]
     Active Substance: DULOXETINE HYDROCHLORIDE
     Indication: Neuromyelitis optica spectrum disorder
     Dosage: UNK
     Route: 065
  13. SENNOSIDES A AND B [Concomitant]
     Active Substance: SENNOSIDES A AND B
     Indication: Constipation
     Dosage: UNK
     Route: 065
  14. HERBALS [Concomitant]
     Active Substance: HERBALS
     Indication: Constipation
     Dosage: UNK
     Route: 065

REACTIONS (3)
  - COVID-19 pneumonia [Recovering/Resolving]
  - Pneumonia pneumococcal [Recovering/Resolving]
  - Off label use [Unknown]

NARRATIVE: CASE EVENT DATE: 20240523
